FAERS Safety Report 14822898 (Version 1)
Quarter: 2018Q2

REPORT INFORMATION
  Report Type: Spontaneous
  Country: DE (occurrence: DE)
  Receive Date: 20180427
  Receipt Date: 20180427
  Transmission Date: 20180711
  Serious: Yes (Other)
  Sender: FDA-Public Use
  Company Number: DE-PFIZER INC-2018173117

PATIENT
  Sex: Female

DRUGS (4)
  1. BETAVERT [Concomitant]
     Dosage: UNK
  2. LATANOPROST. [Concomitant]
     Active Substance: LATANOPROST
     Dosage: UNK
  3. RAMILICH [Suspect]
     Active Substance: RAMIPRIL
     Indication: HYPERTENSION
     Dosage: 5 MG, 1X/DAY
     Route: 048
     Dates: start: 201802
  4. BISOPROLOL [Concomitant]
     Active Substance: BISOPROLOL
     Dosage: UNK

REACTIONS (33)
  - Blood pressure fluctuation [Unknown]
  - Dyspepsia [Unknown]
  - Flushing [Unknown]
  - Chest pain [Unknown]
  - Sinusitis [Unknown]
  - Myalgia [Unknown]
  - Confusional state [Unknown]
  - Dizziness [Unknown]
  - Vision blurred [Unknown]
  - Asthenia [Unknown]
  - Nausea [Unknown]
  - Chest discomfort [Unknown]
  - Depressed mood [Unknown]
  - Anxiety [Unknown]
  - Pollakiuria [Unknown]
  - Diarrhoea [Unknown]
  - Disturbance in attention [Unknown]
  - Tinnitus [Unknown]
  - Skin exfoliation [Unknown]
  - Tremor [Unknown]
  - Abdominal discomfort [Unknown]
  - Arrhythmia [Unknown]
  - Fatigue [Unknown]
  - Hyperhidrosis [Unknown]
  - Muscle spasms [Unknown]
  - Vomiting [Unknown]
  - Restlessness [Unknown]
  - Palpitations [Unknown]
  - Headache [Unknown]
  - Constipation [Unknown]
  - Abdominal pain [Unknown]
  - Dry mouth [Unknown]
  - Cough [Unknown]
